FAERS Safety Report 21264292 (Version 1)
Quarter: 2022Q3

REPORT INFORMATION
  Report Type: Spontaneous
  Country: US (occurrence: US)
  Receive Date: 20220829
  Receipt Date: 20220829
  Transmission Date: 20221027
  Serious: No
  Sender: FDA-Public Use
  Company Number: US-LUPIN PHARMACEUTICALS INC.-2022-10597

PATIENT
  Age: 64 Year
  Sex: Female

DRUGS (2)
  1. BUDESONIDE [Suspect]
     Active Substance: BUDESONIDE
     Indication: Oesophageal carcinoma
     Dosage: UNK 16 AMPOULES 4 TIMES A DAY.
     Route: 048
  2. PANTOPRAZOLE [Concomitant]
     Active Substance: PANTOPRAZOLE
     Indication: Gastrointestinal pain
     Dosage: UNK
     Route: 065

REACTIONS (2)
  - Off label use [Unknown]
  - Incorrect route of product administration [Unknown]
